FAERS Safety Report 11693542 (Version 2)
Quarter: 2016Q1

REPORT INFORMATION
  Report Type: Spontaneous
  Country: US (occurrence: US)
  Receive Date: 20151103
  Receipt Date: 20160107
  Transmission Date: 20160525
  Serious: No
  Sender: FDA-Public Use
  Company Number: US-APOTEX-2015AP009573

PATIENT
  Sex: Female

DRUGS (1)
  1. AZELASTINE HYDROCHLORIDE NASAL SOLUTION (NASAL SPRAY) [Suspect]
     Active Substance: AZELASTINE HYDROCHLORIDE
     Indication: PRODUCT USED FOR UNKNOWN INDICATION
     Dosage: 2 DF, IN EACH NOSTRIL ONCE DAILY
     Route: 045
     Dates: start: 20150517, end: 20150519

REACTIONS (4)
  - Drug ineffective [Unknown]
  - Throat irritation [Unknown]
  - Nasal discomfort [Unknown]
  - Dry throat [Unknown]
